FAERS Safety Report 14998996 (Version 1)
Quarter: 2018Q2

REPORT INFORMATION
  Report Type: Spontaneous
  Country: DE (occurrence: DE)
  Receive Date: 20180612
  Receipt Date: 20180612
  Transmission Date: 20180711
  Serious: Yes (Hospitalization)
  Sender: FDA-Public Use
  Company Number: DE-TEVA-2018-DE-903888

PATIENT
  Age: 54 Year
  Sex: Male
  Weight: 89 kg

DRUGS (15)
  1. POLYSTYROLSULFONAT [Concomitant]
     Route: 048
  2. PREDNISOLONE. [Suspect]
     Active Substance: PREDNISOLONE
     Route: 048
  3. ACICLOVIR [Concomitant]
     Active Substance: ACYCLOVIR
     Route: 048
  4. TAMSULOSIN [Concomitant]
     Active Substance: TAMSULOSIN
     Route: 048
  5. BUDESONIDE. [Concomitant]
     Active Substance: BUDESONIDE
     Route: 048
  6. TORASEMID [Concomitant]
     Active Substance: TORSEMIDE
     Route: 048
  7. SULFAMETHOXAZOL/TRIMETHOPRIM [Concomitant]
     Active Substance: SULFAMETHOXAZOLE\TRIMETHOPRIM
     Route: 048
  8. ROMIPLOSTIM [Concomitant]
     Active Substance: ROMIPLOSTIM
     Route: 058
  9. SIMETICON [Concomitant]
     Route: 048
  10. PANTOPRAZOL [Concomitant]
     Active Substance: PANTOPRAZOLE SODIUM
     Route: 048
  11. POSACONAZOL [Concomitant]
     Active Substance: POSACONAZOLE
     Route: 048
  12. LEVOTHYROXINE SODIUM. [Concomitant]
     Active Substance: LEVOTHYROXINE SODIUM
     Route: 048
  13. TACROLIMUS. [Concomitant]
     Active Substance: TACROLIMUS
     Route: 048
  14. METOPROLOL. [Concomitant]
     Active Substance: METOPROLOL
     Route: 048
  15. MAGNESIUM [Concomitant]
     Active Substance: MAGNESIUM
     Route: 048

REACTIONS (2)
  - Hyperglycaemia [Unknown]
  - Primary myelofibrosis [Unknown]
